FAERS Safety Report 7776525-8 (Version None)
Quarter: 2011Q3

REPORT INFORMATION
  Report Type: 
  Country: None (occurrence: None)
  Receive Date: 20110926
  Receipt Date: 20110913
  Transmission Date: 20111222
  Serious: Yes (Other)
  Sender: FDA-Public Use
  Company Number: BR-US-EMD SERONO, INC.-7079170

PATIENT
  Sex: Female

DRUGS (2)
  1. REBIF [Suspect]
     Indication: PRODUCT USED FOR UNKNOWN INDICATION
     Dates: start: 20110125
  2. NEUROLEPTIL [Concomitant]

REACTIONS (4)
  - BREAST CYST [None]
  - ABDOMINAL PAIN [None]
  - DEPRESSED MOOD [None]
  - ENDOMETRIAL DISORDER [None]
